FAERS Safety Report 5255558-X (Version None)
Quarter: 2007Q1

REPORT INFORMATION
  Report Type: 
  Country: None (occurrence: None)
  Receive Date: 20070228
  Receipt Date: 20070219
  Transmission Date: 20070707
  Serious: Yes (Hospitalization)
  Sender: FDA-Public Use
  Company Number: 6030274

PATIENT
  Age: 68 Year
  Sex: Male

DRUGS (8)
  1. LODOZ (HYDROCHLOROTHIAZIDE, BISOPROLOL, FUMARATE) [Suspect]
     Indication: DRUG USE FOR UNKNOWN INDICATION
     Dosage: 1 DOSAGE  FORMS (1 DOSAGE FORMS, 1 D) ORAL
     Route: 048
     Dates: start: 20061004, end: 20061227
  2. LANSOPRAZOLE [Suspect]
     Indication: DRUG USE FOR UNKNOWN INDICATION
     Dosage: 15 MG (15  MG, 1D) ORAL
     Route: 048
     Dates: start: 20061004, end: 20061227
  3. MEDIATENSYL (URAPIDIL) [Suspect]
     Indication: DRUG USE FOR UNKNOWN INDICATION
     Dosage: 120,0000 MG (60 MG, 2 IN 1 D) ORAL
     Route: 048
     Dates: start: 20061004, end: 20061227
  4. PLAQUENIL [Concomitant]
  5. COKENZEN (HYDROCHLOROTHIAZIDE, CANDESARTAN CILEXETIL) [Concomitant]
  6. AMITRIPTYLINE HCL [Concomitant]
  7. JOSIR (TAMSULOSIN HYDROCHLORIDE) [Concomitant]
  8. ZOLPIDEM TARTRATE [Concomitant]

REACTIONS (6)
  - ANOREXIA [None]
  - GENERAL PHYSICAL HEALTH DETERIORATION [None]
  - NEUTROPENIA [None]
  - NORMOCHROMIC NORMOCYTIC ANAEMIA [None]
  - PLASMACYTOSIS [None]
  - PYREXIA [None]
